FAERS Safety Report 5718093-8 (Version None)
Quarter: 2008Q2

REPORT INFORMATION
  Report Type: 
  Country: None (occurrence: None)
  Receive Date: 20080425
  Receipt Date: 20080414
  Transmission Date: 20081010
  Serious: Yes (Hospitalization, Disabling)
  Sender: FDA-Public Use
  Company Number: US-MERCK-0705USA05349

PATIENT
  Age: 41 Year
  Sex: Female

DRUGS (1)
  1. FOSAMAX [Suspect]
     Indication: OSTEOPOROSIS
     Route: 048

REACTIONS (30)
  - ABSCESS [None]
  - ANXIETY [None]
  - ASTHMA [None]
  - BONE DISORDER [None]
  - BURNING SENSATION [None]
  - CHRONIC OBSTRUCTIVE PULMONARY DISEASE [None]
  - DENTAL CARIES [None]
  - DEPRESSION [None]
  - DIABETES MELLITUS [None]
  - FISTULA [None]
  - GALLBLADDER DISORDER [None]
  - GASTRIC DISORDER [None]
  - GINGIVAL BLEEDING [None]
  - HEART RATE [None]
  - HYPERTENSION [None]
  - HYPOAESTHESIA ORAL [None]
  - IMPAIRED HEALING [None]
  - INJURY [None]
  - JAW DISORDER [None]
  - JOINT RANGE OF MOTION DECREASED [None]
  - JOINT STIFFNESS [None]
  - OEDEMA MOUTH [None]
  - ORAL INFECTION [None]
  - ORAL PAIN [None]
  - PAIN [None]
  - PAIN IN JAW [None]
  - PARAESTHESIA [None]
  - RHEUMATOID ARTHRITIS [None]
  - SWELLING [None]
  - TOOTH LOSS [None]
